FAERS Safety Report 7330772-8 (Version None)
Quarter: 2011Q1

REPORT INFORMATION
  Report Type: 
  Country: None (occurrence: None)
  Receive Date: 20110225
  Receipt Date: 20110225
  Transmission Date: 20110831
  Serious: Yes (Other)
  Sender: FDA-Public Use
  Company Number: None

PATIENT
  Sex: Male
  Weight: 76.2043 kg

DRUGS (1)
  1. FLOMAX [Suspect]
     Indication: PROSTATOMEGALY
     Dosage: 1 TABLET DAILY  SEVERAL MONTHS

REACTIONS (3)
  - DIZZINESS [None]
  - BLOOD PRESSURE DECREASED [None]
  - PRESYNCOPE [None]
